FAERS Safety Report 12528654 (Version 1)
Quarter: 2016Q3

REPORT INFORMATION
  Report Type: Spontaneous
  Country: US (occurrence: US)
  Receive Date: 20160705
  Receipt Date: 20160705
  Transmission Date: 20161109
  Serious: No
  Sender: FDA-Public Use
  Company Number: US-SA-2016SA097423

PATIENT
  Age: 62 Year
  Sex: Male

DRUGS (1)
  1. JEVTANA [Suspect]
     Active Substance: CABAZITAXEL
     Route: 042
     Dates: end: 201604

REACTIONS (5)
  - Dysuria [Recovering/Resolving]
  - Prostatic specific antigen increased [Recovering/Resolving]
  - Pollakiuria [Recovering/Resolving]
  - Haematuria [Recovering/Resolving]
  - Abdominal pain upper [Recovering/Resolving]

NARRATIVE: CASE EVENT DATE: 2015
